FAERS Safety Report 21065526 (Version 1)
Quarter: 2022Q3

REPORT INFORMATION
  Report Type: Spontaneous
  Country: JP (occurrence: JP)
  Receive Date: 20220711
  Receipt Date: 20220711
  Transmission Date: 20221027
  Serious: Yes (Life-Threatening, Hospitalization, Disabling, Other)
  Sender: FDA-Public Use
  Company Number: JP-BAYER-2022A074930

PATIENT
  Age: 87 Year
  Sex: Female

DRUGS (8)
  1. XARELTO [Suspect]
     Active Substance: RIVAROXABAN
     Indication: Atrial fibrillation
     Dosage: DAILY DOSE 1DF
     Route: 048
     Dates: start: 20191105
  2. NIFEDIPINE [Concomitant]
     Active Substance: NIFEDIPINE
     Dosage: DAILY DOSE 1DF
     Dates: start: 20191105
  3. LOSARHYD LD [Concomitant]
     Dosage: DAILY DOSE 1DF
     Dates: start: 20220208
  4. BISOPROLOL FUMARATE [Concomitant]
     Active Substance: BISOPROLOL FUMARATE
     Dosage: DAILY DOSE 1DF
     Dates: start: 20140524
  5. ALLOPURINOL [Concomitant]
     Active Substance: ALLOPURINOL
     Dosage: DAILY DOSE 1DF
     Dates: start: 20131011
  6. ALFA-TOCOPHEROL NICOTINATE [Concomitant]
     Dosage: DAILY DOSE 3DF
     Dates: start: 20180316
  7. MENATETRENONE [Concomitant]
     Active Substance: MENATETRENONE
     Dosage: DAILY DOSE 3DF
     Dates: start: 20001030
  8. EPL [POLYENE PHOSPHATIDYLCHOLINE] [Concomitant]
     Dosage: DAILY DOSE 6DF
     Dates: start: 20081105

REACTIONS (4)
  - Thalamus haemorrhage [Recovered/Resolved with Sequelae]
  - Monoparesis [Recovered/Resolved with Sequelae]
  - Haematochezia [Recovered/Resolved]
  - Contraindicated product administered [Unknown]

NARRATIVE: CASE EVENT DATE: 20220304
